FAERS Safety Report 17274946 (Version 1)
Quarter: 2020Q1

REPORT INFORMATION
  Report Type: Spontaneous
  Country: US (occurrence: US)
  Receive Date: 20200116
  Receipt Date: 20200116
  Transmission Date: 20200409
  Serious: Yes (Other)
  Sender: FDA-Public Use
  Company Number: US-AMGEN-USASP2020003549

PATIENT
  Sex: Female

DRUGS (2)
  1. REPATHA [Suspect]
     Active Substance: EVOLOCUMAB
     Indication: HYPERCHOLESTEROLAEMIA
     Dosage: 140 MILLIGRAM, Q2WK
     Route: 065
     Dates: start: 201907
  2. ASA [Concomitant]
     Active Substance: ASPIRIN
     Dosage: UNK
     Dates: start: 201907

REACTIONS (2)
  - Diabetes mellitus [Unknown]
  - Coronary artery occlusion [Unknown]
